FAERS Safety Report 11760587 (Version 8)
Quarter: 2017Q4

REPORT INFORMATION
  Report Type: Spontaneous
  Country: JP (occurrence: JP)
  Receive Date: 20151120
  Receipt Date: 20171025
  Transmission Date: 20180320
  Serious: Yes (Life-Threatening, Hospitalization, Other)
  Sender: FDA-Public Use
  Company Number: JP-DSJP-DSJ-2015-136039

PATIENT

DRUGS (11)
  1. LOXONIN [Concomitant]
     Active Substance: LOXOPROFEN SODIUM
     Dosage: UNK
     Route: 065
  2. GLUFAST [Concomitant]
     Active Substance: MITIGLINIDE
     Dosage: 10 MG, BID
     Route: 065
     Dates: start: 20150508, end: 20150918
  3. REZALTAS COMBINATION TABLETS [Concomitant]
     Dosage: UNK
     Route: 065
  4. LIXIANA TABLETS 30MG [Suspect]
     Active Substance: EDOXABAN TOSYLATE
     Indication: DEEP VEIN THROMBOSIS
     Dosage: 30 MG, QD
     Route: 048
     Dates: start: 20150627, end: 20150628
  5. LIXIANA TABLETS 30MG [Suspect]
     Active Substance: EDOXABAN TOSYLATE
     Dosage: 30 MG, QD, INTERMITTENT ADMINISTRATION
     Route: 048
     Dates: start: 20150730, end: 20150918
  6. ALLEGRA [Concomitant]
     Active Substance: FEXOFENADINE HYDROCHLORIDE
     Dosage: 60 MG, BID
     Route: 065
     Dates: start: 20150807
  7. PRONASE [Concomitant]
     Active Substance: PROTEASE
     Dosage: UNK
     Route: 065
  8. TENELIA [Concomitant]
     Active Substance: TENELIGLIPTIN
     Dosage: 20 MG, QD
     Route: 065
  9. LYRICA [Concomitant]
     Active Substance: PREGABALIN
     Dosage: 75 MG, QD
     Route: 065
  10. TIGASONE [Concomitant]
     Active Substance: ACITRETIN
     Dosage: 10 MG, QD
     Dates: end: 20150918
  11. REBAMIPIDE [Concomitant]
     Active Substance: REBAMIPIDE
     Dosage: 100 MG, TID
     Route: 065

REACTIONS (2)
  - Stevens-Johnson syndrome [Recovering/Resolving]
  - Renal disorder [Recovered/Resolved]

NARRATIVE: CASE EVENT DATE: 20150917
